FAERS Safety Report 8243701-X (Version None)
Quarter: 2012Q1

REPORT INFORMATION
  Report Type: 
  Country: None (occurrence: None)
  Receive Date: 20120329
  Receipt Date: 20110307
  Transmission Date: 20120608
  Serious: No
  Sender: FDA-Public Use
  Company Number: US-MYLANLABS-2011S1002564

PATIENT
  Age: 60 Year
  Sex: Female

DRUGS (7)
  1. EMSAM [Suspect]
     Indication: ANXIETY
     Dosage: QD
     Route: 062
     Dates: start: 20101015, end: 20101201
  2. EMSAM [Suspect]
     Dosage: QD
     Route: 062
     Dates: start: 20101201, end: 20110129
  3. XANAX [Concomitant]
     Indication: DEPRESSION
     Route: 048
  4. ASPIRIN [Concomitant]
  5. EMSAM [Suspect]
     Indication: DEPRESSION
     Dosage: QD
     Route: 062
     Dates: start: 20101015, end: 20101201
  6. EMSAM [Suspect]
     Dosage: QD
     Route: 062
     Dates: start: 20101201, end: 20110129
  7. FLECAINIDE ACETATE [Concomitant]
     Indication: ARRHYTHMIA
     Route: 048
     Dates: start: 20101201

REACTIONS (3)
  - HEART RATE INCREASED [None]
  - ORTHOSTATIC HYPOTENSION [None]
  - HYPOTENSION [None]
